FAERS Safety Report 6660439-0 (Version None)
Quarter: 2010Q1

REPORT INFORMATION
  Report Type: 
  Country: None (occurrence: None)
  Receive Date: 20100331
  Receipt Date: 20100329
  Transmission Date: 20100710
  Serious: Yes (Hospitalization)
  Sender: FDA-Public Use
  Company Number: US-ELI_LILLY_AND_COMPANY-US201002007289

PATIENT
  Sex: Female
  Weight: 96.599 kg

DRUGS (4)
  1. BYETTA [Suspect]
     Indication: TYPE 2 DIABETES MELLITUS
     Dosage: 5 UG, 2/D
     Route: 058
     Dates: start: 20090301, end: 20090601
  2. BYETTA [Suspect]
     Dosage: 5 UG, 2/D
     Dates: start: 20100222
  3. LISINOPRIL [Concomitant]
     Dates: end: 20090101
  4. IBUPROFEN [Concomitant]
     Indication: PAIN
     Dosage: UNK, AS NEEDED

REACTIONS (8)
  - ARTERIAL OCCLUSIVE DISEASE [None]
  - BLOOD CHOLESTEROL INCREASED [None]
  - BLOOD PRESSURE INCREASED [None]
  - CARDIAC ENZYMES INCREASED [None]
  - CHEST PAIN [None]
  - DYSPEPSIA [None]
  - MALAISE [None]
  - MYOCARDIAL INFARCTION [None]
